FAERS Safety Report 20881704 (Version 2)
Quarter: 2022Q2

REPORT INFORMATION
  Report Type: Spontaneous
  Country: JP (occurrence: JP)
  Receive Date: 20220527
  Receipt Date: 20220621
  Transmission Date: 20220721
  Serious: No
  Sender: FDA-Public Use
  Company Number: JP-NOVARTISPH-NVSJ2022JP090812

PATIENT
  Age: 92 Year
  Sex: Female

DRUGS (2)
  1. ENTRESTO [Suspect]
     Active Substance: SACUBITRIL\VALSARTAN
     Indication: Hypertension
     Dosage: 100 MG, QD
     Route: 048
     Dates: start: 20210429
  2. AMLODIPINE [Concomitant]
     Active Substance: AMLODIPINE BESYLATE
     Indication: Hypertension
     Dosage: 5 MG
     Route: 048
     Dates: end: 20220517

REACTIONS (2)
  - Blood pressure decreased [Recovering/Resolving]
  - Fall [Recovering/Resolving]

NARRATIVE: CASE EVENT DATE: 20220517
